FAERS Safety Report 25634593 (Version 1)
Quarter: 2025Q3

REPORT INFORMATION
  Report Type: Spontaneous
  Country: EU (occurrence: EU)
  Receive Date: 20250801
  Receipt Date: 20250801
  Transmission Date: 20251021
  Serious: Yes (Hospitalization, Other)
  Sender: NOVO NORDISK
  Company Number: None

PATIENT
  Age: 58 Year
  Sex: Female

DRUGS (1)
  1. WEGOVY [Suspect]
     Active Substance: SEMAGLUTIDE
     Indication: Overweight
     Dosage: 1.7 MG, QWONCE A WEEK ON WEDNESDAY. CONTINUED USE OF MEDICINAL PRODUCT
     Route: 058
     Dates: start: 20240916

REACTIONS (4)
  - Cholecystectomy [Unknown]
  - Cholelithiasis [Unknown]
  - Cholecystitis [Unknown]
  - Abdominal pain upper [Unknown]

NARRATIVE: CASE EVENT DATE: 20250630
